FAERS Safety Report 18194342 (Version 1)
Quarter: 2020Q3

REPORT INFORMATION
  Report Type: Spontaneous
  Country: SE (occurrence: SE)
  Receive Date: 20200825
  Receipt Date: 20200825
  Transmission Date: 20201103
  Serious: Yes (Other)
  Sender: FDA-Public Use
  Company Number: SE-MYLANLABS-2020M1073027

PATIENT
  Sex: Female

DRUGS (2)
  1. MODAFINIL ?MYLAN?, TABLETTER [Suspect]
     Active Substance: MODAFINIL
     Indication: PERSISTENT DEPRESSIVE DISORDER
     Dosage: UNK
     Dates: start: 202003
  2. MODAFINIL ?MYLAN?, TABLETTER [Suspect]
     Active Substance: MODAFINIL
     Indication: DISTURBANCE IN ATTENTION

REACTIONS (2)
  - Drug dependence [Unknown]
  - Product use in unapproved indication [Unknown]
